FAERS Safety Report 13298307 (Version 1)
Quarter: 2017Q1

REPORT INFORMATION
  Report Type: Spontaneous
  Country: US (occurrence: US)
  Receive Date: 20170306
  Receipt Date: 20170306
  Transmission Date: 20170428
  Serious: Yes (Life-Threatening, Disabling)
  Sender: FDA-Public Use
  Company Number: None

PATIENT
  Age: 25 Year
  Sex: Female
  Weight: 143.46 kg

DRUGS (15)
  1. ZOLOFT [Concomitant]
     Active Substance: SERTRALINE HYDROCHLORIDE
  2. TYLENOL [Concomitant]
     Active Substance: ACETAMINOPHEN
  3. HYDROCODONE [Concomitant]
     Active Substance: HYDROCODONE
  4. VENTHLIN [Concomitant]
  5. BUSPIRONE [Concomitant]
     Active Substance: BUSPIRONE HYDROCHLORIDE
  6. GABAPENTIN. [Concomitant]
     Active Substance: GABAPENTIN
  7. FOOT PILL [Concomitant]
  8. DEPACOTE [Concomitant]
  9. ZYRTEC [Concomitant]
     Active Substance: CETIRIZINE HYDROCHLORIDE
  10. SARAQUIL [Concomitant]
  11. NAPROXEN. [Concomitant]
     Active Substance: NAPROXEN
  12. ABILIFY [Suspect]
     Active Substance: ARIPIPRAZOLE
     Indication: BIPOLAR DISORDER
     Dosage: 2 PILLS 1X DAILY MOUTH ONLY
     Route: 048
     Dates: start: 2008
  13. BREO ELLIPTA [Concomitant]
     Active Substance: FLUTICASONE FUROATE\VILANTEROL TRIFENATATE
  14. PRILOCIC [Concomitant]
  15. ADVIL [Concomitant]
     Active Substance: IBUPROFEN

REACTIONS (2)
  - Gambling disorder [None]
  - Suicide attempt [None]

NARRATIVE: CASE EVENT DATE: 200610
